FAERS Safety Report 11065605 (Version 2)
Quarter: 2015Q2

REPORT INFORMATION
  Report Type: Spontaneous
  Country: US (occurrence: US)
  Receive Date: 20150425
  Receipt Date: 20150524
  Transmission Date: 20150821
  Serious: No
  Sender: FDA-Public Use
  Company Number: US-JNJFOC-20130710780

PATIENT
  Age: 51 Year
  Sex: Female
  Weight: 67.59 kg

DRUGS (5)
  1. SENNA DOCUSATE [Concomitant]
     Indication: CONSTIPATION
     Dosage: 50/8.6MG
     Route: 048
     Dates: start: 201303
  2. GABAPENTIN. [Concomitant]
     Active Substance: GABAPENTIN
     Route: 048
     Dates: start: 201303
  3. ZOFRAN [Concomitant]
     Active Substance: ONDANSETRON HYDROCHLORIDE
     Indication: NAUSEA
     Dosage: AS NEEDED
     Route: 048
     Dates: start: 201303
  4. DURAGESIC [Suspect]
     Active Substance: FENTANYL
     Indication: OVARIAN CANCER
     Route: 062
     Dates: start: 20130714
  5. HYDROMORPHONE [Concomitant]
     Active Substance: HYDROMORPHONE
     Indication: PAIN
     Route: 048
     Dates: start: 201304

REACTIONS (1)
  - Drug ineffective [Not Recovered/Not Resolved]

NARRATIVE: CASE EVENT DATE: 20130714
